FAERS Safety Report 5602212-8 (Version None)
Quarter: 2008Q1

REPORT INFORMATION
  Report Type: 
  Country: None (occurrence: None)
  Receive Date: 20080125
  Receipt Date: 20080116
  Transmission Date: 20080703
  Serious: Yes (Hospitalization)
  Sender: FDA-Public Use
  Company Number: PHNU2007DE02328

PATIENT
  Sex: Female
  Weight: 55 kg

DRUGS (3)
  1. LEPONEX [Suspect]
     Indication: SCHIZOPHRENIA
     Dosage: 525 MG/DAY
     Route: 048
     Dates: start: 19940101
  2. FLUANXOL ^BAYER^ [Concomitant]
     Indication: SCHIZOPHRENIA
  3. RISPERIDONE [Concomitant]
     Dosage: 2 MG AT NIGHT
     Route: 048

REACTIONS (15)
  - AGITATION [None]
  - ANTIPSYCHOTIC DRUG LEVEL ABOVE THERAPEUTIC [None]
  - BLOOD THYROID STIMULATING HORMONE DECREASED [None]
  - BODY TEMPERATURE FLUCTUATION [None]
  - CONSTIPATION [None]
  - DRUG LEVEL INCREASED [None]
  - FATIGUE [None]
  - HYPOTENSION [None]
  - LISTLESS [None]
  - RESTLESS LEGS SYNDROME [None]
  - SLEEP DISORDER [None]
  - TACHYCARDIA [None]
  - THYROID FUNCTION TEST ABNORMAL [None]
  - TRI-IODOTHYRONINE FREE DECREASED [None]
  - VISION BLURRED [None]
